FAERS Safety Report 9076231 (Version 1)
Quarter: 2013Q1

REPORT INFORMATION
  Report Type: Report from Study
  Country: US (occurrence: US)
  Receive Date: 20130129
  Receipt Date: 20130129
  Transmission Date: 20140127
  Serious: No
  Sender: FDA-Public Use
  Company Number: US-ABBOTT-12P-163-0946095-00

PATIENT
  Age: 61 None
  Sex: Male
  Weight: 93.07 kg

DRUGS (4)
  1. HUMIRA 40 MG/0.8 ML PEN [Suspect]
     Indication: PSORIASIS
     Dates: start: 20120510
  2. SIMVASTATIN [Concomitant]
     Indication: BLOOD CHOLESTEROL INCREASED
  3. LOSARTAN [Concomitant]
     Indication: HYPERTENSION
  4. ZYRTEC [Concomitant]
     Indication: HYPERSENSITIVITY

REACTIONS (1)
  - Pruritus [Recovered/Resolved]
